FAERS Safety Report 9276644 (Version 1)
Quarter: 2013Q2

REPORT INFORMATION
  Report Type: Report from Study
  Country: US (occurrence: US)
  Receive Date: 20130507
  Receipt Date: 20130507
  Transmission Date: 20140414
  Serious: Yes (Other)
  Sender: FDA-Public Use
  Company Number: US-TEVA-403086USA

PATIENT
  Age: 60 Year
  Sex: Female

DRUGS (2)
  1. COPAXONE [Suspect]
     Dates: start: 201206, end: 2013
  2. NYQUIL [Interacting]

REACTIONS (2)
  - Loss of consciousness [Recovered/Resolved]
  - Drug interaction [Unknown]
